FAERS Safety Report 8209306-1 (Version None)
Quarter: 2012Q1

REPORT INFORMATION
  Report Type: 
  Country: None (occurrence: None)
  Receive Date: 20120314
  Receipt Date: 20120306
  Transmission Date: 20120608
  Serious: Yes (Other)
  Sender: FDA-Public Use
  Company Number: US-BAYER-2012-003346

PATIENT
  Age: 42 Year
  Sex: Female
  Weight: 61.678 kg

DRUGS (2)
  1. MIRENA [Suspect]
     Indication: CONTRACEPTION
     Dosage: UNK
     Dates: start: 20111010, end: 20111010
  2. MIRENA [Suspect]
     Indication: MENORRHAGIA

REACTIONS (2)
  - MUSCLE SPASMS [None]
  - UTERINE PERFORATION [None]
